FAERS Safety Report 13211222 (Version 3)
Quarter: 2017Q1

REPORT INFORMATION
  Report Type: Spontaneous
  Country: GB (occurrence: GB)
  Receive Date: 20170209
  Receipt Date: 20170222
  Transmission Date: 20170428
  Serious: Yes (Death)
  Sender: FDA-Public Use
  Company Number: GB-PFIZER INC-2017057548

PATIENT
  Age: 64 Year
  Sex: Female

DRUGS (1)
  1. METHOTREXATE SODIUM. [Suspect]
     Active Substance: METHOTREXATE SODIUM
     Indication: PSORIASIS
     Dosage: 15 MG, WEEKLY (LOW-DOSE)

REACTIONS (6)
  - Folate deficiency [Fatal]
  - Macrocytosis [Fatal]
  - Pneumonia [Fatal]
  - Leukopenia [Fatal]
  - Pancytopenia [Fatal]
  - Anaemia megaloblastic [Fatal]
